FAERS Safety Report 13849883 (Version 1)
Quarter: 2017Q3

REPORT INFORMATION
  Report Type: Spontaneous
  Country: US (occurrence: US)
  Receive Date: 20170809
  Receipt Date: 20170809
  Transmission Date: 20171127
  Serious: Yes (Other)
  Sender: FDA-Public Use
  Company Number: US-AMGEN-USASP2017109328

PATIENT
  Age: 73 Year
  Sex: Male

DRUGS (6)
  1. FLOMAX [Concomitant]
     Active Substance: TAMSULOSIN HYDROCHLORIDE
     Dosage: UNK
     Route: 048
  2. PROCRIT [Suspect]
     Active Substance: ERYTHROPOIETIN
     Indication: ANAEMIA MACROCYTIC
     Dosage: UNK
     Route: 065
     Dates: start: 2014
  3. TESTOSTERONE. [Concomitant]
     Active Substance: TESTOSTERONE
     Indication: ANAEMIA MACROCYTIC
     Dosage: UNK (FOR 3 YEARS)
  4. PROCRIT [Suspect]
     Active Substance: ERYTHROPOIETIN
     Dosage: 20000 UNIT, UNK
     Route: 065
     Dates: start: 201707
  5. PRASTERONE [Concomitant]
     Active Substance: PRASTERONE
     Dosage: UNK
     Route: 048
  6. ASPIRIN. [Concomitant]
     Active Substance: ASPIRIN
     Dosage: 81 MG, QD
     Route: 048

REACTIONS (14)
  - Haemoglobin decreased [Not Recovered/Not Resolved]
  - Renal failure [Not Recovered/Not Resolved]
  - Drug hypersensitivity [Unknown]
  - Fatigue [Not Recovered/Not Resolved]
  - Off label use [Unknown]
  - Arteriosclerosis coronary artery [Unknown]
  - Cholelithiasis [Unknown]
  - Coronary artery disease [Unknown]
  - Weight decreased [Unknown]
  - Rash pruritic [Not Recovered/Not Resolved]
  - Malignant melanoma [Not Recovered/Not Resolved]
  - Urticaria [Unknown]
  - Asthenia [Not Recovered/Not Resolved]
  - Anxiety [Recovering/Resolving]

NARRATIVE: CASE EVENT DATE: 2014
